FAERS Safety Report 8255839-1 (Version None)
Quarter: 2012Q2

REPORT INFORMATION
  Report Type: 
  Country: None (occurrence: None)
  Receive Date: 20120403
  Receipt Date: 20120328
  Transmission Date: 20120825
  Serious: Yes (Hospitalization)
  Sender: FDA-Public Use
  Company Number: US-ACTELION-A-NJ2012-61157

PATIENT

DRUGS (4)
  1. VENTAVIS [Suspect]
     Dosage: UNK
     Route: 055
     Dates: start: 20100401
  2. VENTAVIS [Suspect]
     Indication: PULMONARY ARTERIAL HYPERTENSION
     Dosage: UNK
     Route: 055
  3. LETAIRIS [Suspect]
  4. CALCIUM CHANNEL BLOCKERS [Concomitant]

REACTIONS (4)
  - CORONARY ARTERY DISEASE [None]
  - ABDOMINAL PAIN UPPER [None]
  - CARDIAC ENZYMES INCREASED [None]
  - OEDEMA [None]
